FAERS Safety Report 15993021 (Version 1)
Quarter: 2019Q1

REPORT INFORMATION
  Report Type: Spontaneous
  Country: US (occurrence: US)
  Receive Date: 20190221
  Receipt Date: 20190221
  Transmission Date: 20190418
  Serious: No
  Sender: FDA-Public Use
  Company Number: US-CIPLA LTD.-2019US00088

PATIENT

DRUGS (1)
  1. TESTOSTERONE. [Suspect]
     Active Substance: TESTOSTERONE
     Indication: SUPPLEMENTATION THERAPY
     Dosage: UNK, ONCE IN A WEEK, 2 VIALS
     Route: 065

REACTIONS (3)
  - Product physical consistency issue [Unknown]
  - Product container issue [Unknown]
  - Pain in extremity [Unknown]
